FAERS Safety Report 10729515 (Version 1)
Quarter: 2015Q1

REPORT INFORMATION
  Report Type: Spontaneous
  Country: US (occurrence: None)
  Receive Date: 20150112
  Receipt Date: 20150112
  Transmission Date: 20150721
  Serious: Yes (Death)
  Sender: FDA-Public Use
  Company Number: 2013AP004761

PATIENT
  Age: 48 Year
  Sex: Male

DRUGS (6)
  1. CICLOSPORIN [Concomitant]
     Active Substance: CYCLOSPORINE
  2. TACROLIMUS (TACROLIMUS) UNKNOWN, UNKUNK [Suspect]
     Active Substance: TACROLIMUS
     Indication: TRANSPLANT REJECTION
  3. PREDNISONE. [Suspect]
     Active Substance: PREDNISONE
     Indication: TRANSPLANT REJECTION
  4. METHYLPREDNISOLONE. [Concomitant]
     Active Substance: METHYLPREDNISOLONE
  5. RITUXIMAB [Suspect]
     Active Substance: RITUXIMAB
     Indication: TRANSPLANT REJECTION
     Dosage: FOUR CYCLES OF 780MG OVER 5 WEEKS
  6. MYCOPHENOLATE MOFETIL. [Suspect]
     Active Substance: MYCOPHENOLATE MOFETIL
     Indication: TRANSPLANT REJECTION
     Dates: start: 2002

REACTIONS (1)
  - Progressive multifocal leukoencephalopathy [None]
